FAERS Safety Report 14315940 (Version 1)
Quarter: 2017Q4

REPORT INFORMATION
  Report Type: Spontaneous
  Country: GB (occurrence: GB)
  Receive Date: 20171221
  Receipt Date: 20171221
  Transmission Date: 20180321
  Serious: Yes (Other)
  Sender: FDA-Public Use
  Company Number: GB-009507513-1712GBR009739

PATIENT
  Age: 59 Year
  Sex: Female
  Weight: 58.96 kg

DRUGS (3)
  1. VAGIFEM [Concomitant]
     Active Substance: ESTRADIOL
  2. LEVOTHYROXINE SODIUM. [Concomitant]
     Active Substance: LEVOTHYROXINE SODIUM
  3. MOMETASONE FUROATE. [Suspect]
     Active Substance: MOMETASONE FUROATE
     Indication: LICHEN SCLEROSUS
     Dosage: PEA SIZE AMOUNT AT NIGHT.
     Route: 061
     Dates: start: 20171130, end: 20171204

REACTIONS (3)
  - Pain [Recovering/Resolving]
  - Burning sensation [Recovering/Resolving]
  - Rash [Recovering/Resolving]
